FAERS Safety Report 7795042-2 (Version None)
Quarter: 2011Q4

REPORT INFORMATION
  Report Type: 
  Country: None (occurrence: None)
  Receive Date: 20111004
  Receipt Date: 20110926
  Transmission Date: 20120403
  Serious: Yes (Hospitalization)
  Sender: FDA-Public Use
  Company Number: JP-JNJFOC-20110911708

PATIENT
  Age: 57 Year
  Weight: 55.6 kg

DRUGS (2)
  1. OXYCODONE HCL [Suspect]
     Indication: PRODUCT USED FOR UNKNOWN INDICATION
     Route: 065
  2. TAPENTADOL HYDROCHLORIDE [Suspect]
     Indication: CANCER PAIN
     Dosage: TWICE A DAY
     Route: 048
     Dates: start: 20110916

REACTIONS (1)
  - DYSKINESIA [None]
